FAERS Safety Report 7266144-4 (Version None)
Quarter: 2011Q1

REPORT INFORMATION
  Report Type: 
  Country: None (occurrence: None)
  Receive Date: 20110131
  Receipt Date: 20110121
  Transmission Date: 20110831
  Serious: Yes (Hospitalization, Other)
  Sender: FDA-Public Use
  Company Number: US-ASTRAZENECA-2010SE50677

PATIENT
  Age: 44 Year
  Sex: Female
  Weight: 77.1 kg

DRUGS (14)
  1. SEROQUEL [Suspect]
     Indication: SLEEP DISORDER
     Route: 048
     Dates: start: 20000101
  2. SEROQUEL [Suspect]
     Route: 048
     Dates: start: 20100101, end: 20101012
  3. SEROQUEL [Suspect]
     Route: 048
     Dates: end: 20101214
  4. SEROQUEL [Suspect]
     Route: 048
     Dates: start: 20100101, end: 20101012
  5. SEROQUEL [Suspect]
     Indication: ANXIETY
     Route: 048
     Dates: start: 20000101
  6. SEROQUEL [Suspect]
     Indication: MAJOR DEPRESSION
     Route: 048
     Dates: start: 20000101
  7. XANAX [Concomitant]
     Dosage: HS
  8. SEROQUEL [Suspect]
     Route: 048
     Dates: end: 20101214
  9. SEROQUEL [Suspect]
     Route: 048
     Dates: start: 20100101, end: 20101012
  10. SEROQUEL [Suspect]
     Route: 048
     Dates: end: 20101214
  11. SEROQUEL [Suspect]
     Route: 048
     Dates: end: 20101214
  12. SEROQUEL [Suspect]
     Route: 048
     Dates: start: 20100101, end: 20101012
  13. SEROQUEL [Suspect]
     Indication: BIPOLAR DISORDER
     Route: 048
     Dates: start: 20000101
  14. PROZAC [Concomitant]

REACTIONS (14)
  - DRUG EXPOSURE DURING PREGNANCY [None]
  - INSOMNIA [None]
  - DEPRESSION [None]
  - VOMITING [None]
  - CERVIX CERCLAGE PROCEDURE [None]
  - DRUG DOSE OMISSION [None]
  - NAUSEA [None]
  - IMPAIRED WORK ABILITY [None]
  - TACHYCARDIA [None]
  - CONVULSION [None]
  - MALAISE [None]
  - WRONG TECHNIQUE IN DRUG USAGE PROCESS [None]
  - INCORRECT DOSE ADMINISTERED [None]
  - DIZZINESS [None]
